FAERS Safety Report 4296167-9 (Version None)
Quarter: 2004Q1

REPORT INFORMATION
  Report Type: 
  Country: None (occurrence: None)
  Receive Date: 20040217
  Receipt Date: 20030905
  Transmission Date: 20041129
  Serious: No
  Sender: FDA-Public Use
  Company Number: US-GLAXOSMITHKLINE-A0424900A

PATIENT
  Age: 35 Year
  Sex: Female
  Weight: 63.6 kg

DRUGS (8)
  1. LAMICTAL [Suspect]
     Indication: BIPOLAR DISORDER
     Dosage: 100MG TWICE PER DAY
     Route: 048
  2. SEROQUEL [Concomitant]
     Route: 065
  3. WELLBUTRIN [Concomitant]
     Route: 048
  4. TRILEPTAL [Concomitant]
  5. SYNTHROID [Concomitant]
     Route: 065
  6. CYTOMEL [Concomitant]
     Route: 065
  7. ATENOLOL [Concomitant]
     Route: 065
  8. SONATA [Concomitant]
     Route: 065

REACTIONS (1)
  - VISION BLURRED [None]
